FAERS Safety Report 5456299-6 (Version None)
Quarter: 2007Q3

REPORT INFORMATION
  Report Type: 
  Country: None (occurrence: None)
  Receive Date: 20070918
  Receipt Date: 20070918
  Transmission Date: 20080115
  Serious: Yes (Other)
  Sender: FDA-Public Use
  Company Number: A0623988A

PATIENT
  Age: 63 Year
  Sex: Female

DRUGS (11)
  1. NICODERM CQ [Suspect]
     Indication: SMOKING CESSATION THERAPY
     Route: 062
     Dates: start: 20060101
  2. WELLBUTRIN [Suspect]
     Indication: SMOKING CESSATION THERAPY
     Route: 048
  3. VERAPAMIL [Concomitant]
  4. COUMADIN [Concomitant]
  5. LISINOPRIL [Concomitant]
  6. ZETIA [Concomitant]
  7. LIPITOR [Concomitant]
  8. NORETHINDRONE [Concomitant]
  9. ALORA [Concomitant]
  10. SPIRIVA [Concomitant]
  11. ADVAIR DISKUS 100/50 [Concomitant]

REACTIONS (8)
  - ABNORMAL DREAMS [None]
  - DRUG INEFFECTIVE [None]
  - HALLUCINATION [None]
  - HEART RATE INCREASED [None]
  - INCREASED APPETITE [None]
  - NICOTINE DEPENDENCE [None]
  - SUICIDAL IDEATION [None]
  - WEIGHT INCREASED [None]
